FAERS Safety Report 16290840 (Version 11)
Quarter: 2024Q4

REPORT INFORMATION
  Report Type: Spontaneous
  Country: US (occurrence: US)
  Receive Date: 20190509
  Receipt Date: 20241111
  Transmission Date: 20250114
  Serious: Yes (Other)
  Sender: PFIZER
  Company Number: US-PFIZER INC-2019195293

PATIENT
  Age: 75 Year
  Sex: Female

DRUGS (5)
  1. XELJANZ XR [Suspect]
     Active Substance: TOFACITINIB CITRATE
     Dosage: 11 MG, 1X/DAY (TAKE 1 TABLET EVERY DAY AS DIRECTED BY PHYSICIAN)
     Route: 048
     Dates: start: 2015
  2. XELJANZ XR [Suspect]
     Active Substance: TOFACITINIB CITRATE
     Dosage: 11 MG, ALTERNATE DAY (EVERY OTHER DAY)
     Route: 048
     Dates: end: 201611
  3. XELJANZ XR [Suspect]
     Active Substance: TOFACITINIB CITRATE
     Dosage: 11 MG, DAILY
     Route: 048
     Dates: start: 201707, end: 20171017
  4. XELJANZ XR [Suspect]
     Active Substance: TOFACITINIB CITRATE
     Dosage: 11 MG, DAILY
     Route: 048
     Dates: start: 20171117, end: 20241105
  5. XELJANZ XR [Suspect]
     Active Substance: TOFACITINIB CITRATE
     Dosage: 11 MG, ALTERNATE DAY (EVERY OTHER DAY)
     Route: 048
     Dates: start: 2024

REACTIONS (28)
  - Pain [Unknown]
  - Hip arthroplasty [Recovered/Resolved]
  - Product dispensing issue [Unknown]
  - Condition aggravated [Not Recovered/Not Resolved]
  - Intentional product misuse [Unknown]
  - Nasopharyngitis [Unknown]
  - Hypoacusis [Unknown]
  - Oropharyngeal discomfort [Unknown]
  - Infection [Recovered/Resolved]
  - Herpes zoster [Unknown]
  - Hypoaesthesia [Unknown]
  - Localised infection [Unknown]
  - Dysphonia [Unknown]
  - COVID-19 [Unknown]
  - Weight increased [Unknown]
  - Musculoskeletal discomfort [Unknown]
  - Psoriasis [Unknown]
  - Pain [Unknown]
  - Sensitivity to weather change [Not Recovered/Not Resolved]
  - Fall [Unknown]
  - Skin abrasion [Not Recovered/Not Resolved]
  - Therapeutic product effect incomplete [Not Recovered/Not Resolved]
  - Wound infection [Not Recovered/Not Resolved]
  - Wound drainage [Not Recovered/Not Resolved]
  - Feeling hot [Not Recovered/Not Resolved]
  - Arthralgia [Unknown]
  - Device related infection [Recovered/Resolved]
  - Post procedural infection [Recovered/Resolved]

NARRATIVE: CASE EVENT DATE: 20161101
